FAERS Safety Report 5715354-3 (Version None)
Quarter: 2008Q2

REPORT INFORMATION
  Report Type: 
  Country: None (occurrence: None)
  Receive Date: 20080423
  Receipt Date: 20080411
  Transmission Date: 20081010
  Serious: Yes (Other)
  Sender: FDA-Public Use
  Company Number: CA-PFIZER INC-2008032820

PATIENT
  Age: 50 Year
  Sex: Male

DRUGS (2)
  1. CHAMPIX [Suspect]
  2. NAPROXEN [Suspect]

REACTIONS (5)
  - BACK PAIN [None]
  - HOT FLUSH [None]
  - HYPERSENSITIVITY [None]
  - MAJOR DEPRESSION [None]
  - PHARYNGEAL OEDEMA [None]
